FAERS Safety Report 5698189-X (Version None)
Quarter: 2008Q2

REPORT INFORMATION
  Report Type: 
  Country: None (occurrence: None)
  Receive Date: 20080403
  Receipt Date: 20080321
  Transmission Date: 20081010
  Serious: Yes (Death, Life-Threatening, Hospitalization)
  Sender: FDA-Public Use
  Company Number: 000352

PATIENT
  Age: 56 Year
  Sex: Male

DRUGS (5)
  1. BUSULFEX [Suspect]
     Indication: STEM CELL TRANSPLANT
     Dosage: 20.1 ML INTRAVENOUS
     Route: 042
     Dates: start: 20070322, end: 20070322
  2. BUSULFEX [Suspect]
     Indication: STEM CELL TRANSPLANT
     Dosage: 20.1 ML INTRAVENOUS
     Route: 042
     Dates: start: 20070326, end: 20070326
  3. BUSULFEX [Suspect]
     Indication: STEM CELL TRANSPLANT
     Dosage: 20.1 ML INTRAVENOUS
     Route: 042
     Dates: start: 20070323, end: 20070327
  4. CYCLOPHOSPHAMIDE [Suspect]
     Dosage: 2800 MG
     Dates: start: 20070325, end: 20070327
  5. VALPROATE SODIUM [Concomitant]

REACTIONS (8)
  - ANOREXIA [None]
  - BLOOD BILIRUBIN INCREASED [None]
  - BLOOD UREA INCREASED [None]
  - ENCEPHALITIS HERPES [None]
  - GAMMA-GLUTAMYLTRANSFERASE INCREASED [None]
  - NAUSEA [None]
  - SEPSIS [None]
  - VOMITING [None]
